FAERS Safety Report 15295973 (Version 1)
Quarter: 2018Q3

REPORT INFORMATION
  Report Type: Spontaneous
  Country: US (occurrence: US)
  Receive Date: 20180820
  Receipt Date: 20180820
  Transmission Date: 20181010
  Serious: No
  Sender: FDA-Public Use
  Company Number: US-MYLANLABS-2018M1061624

PATIENT
  Sex: Female
  Weight: 43 kg

DRUGS (3)
  1. LEVOTHYROXINE SODIUM TABLETS, USP [Suspect]
     Active Substance: LEVOTHYROXINE SODIUM
     Indication: HYPOTHYROIDISM
     Dosage: 25 ?G, UNK
     Route: 048
  2. DIAZEPAM. [Concomitant]
     Active Substance: DIAZEPAM
     Indication: INSOMNIA
     Dosage: 10 MG, PRN
  3. FOSINOPRIL [Concomitant]
     Active Substance: FOSINOPRIL
     Indication: BLOOD PRESSURE ABNORMAL
     Dosage: UNK

REACTIONS (7)
  - Fatigue [Not Recovered/Not Resolved]
  - Gastritis [Not Recovered/Not Resolved]
  - Intentional product misuse [Not Recovered/Not Resolved]
  - Nausea [Not Recovered/Not Resolved]
  - Insomnia [Not Recovered/Not Resolved]
  - Feeling abnormal [Not Recovered/Not Resolved]
  - Abdominal discomfort [Not Recovered/Not Resolved]
